FAERS Safety Report 4905091-7 (Version None)
Quarter: 2006Q1

REPORT INFORMATION
  Report Type: 
  Country: None (occurrence: None)
  Receive Date: 20060208
  Receipt Date: 20051114
  Transmission Date: 20060701
  Serious: No
  Sender: FDA-Public Use
  Company Number: US-GLAXOSMITHKLINE-A0582147A

PATIENT
  Age: 42 Year
  Sex: Male

DRUGS (2)
  1. PAXIL [Suspect]
     Dosage: 20MG PER DAY
     Route: 048
     Dates: start: 19970101
  2. SYNTHROID [Concomitant]

REACTIONS (2)
  - DISORIENTATION [None]
  - STOMACH DISCOMFORT [None]
